FAERS Safety Report 10210728 (Version 1)
Quarter: 2014Q2

REPORT INFORMATION
  Report Type: Spontaneous
  Country: US (occurrence: US)
  Receive Date: 20140602
  Receipt Date: 20140602
  Transmission Date: 20141212
  Serious: Yes (Other)
  Sender: FDA-Public Use
  Company Number: US-ELI_LILLY_AND_COMPANY-US201405007424

PATIENT
  Sex: Female

DRUGS (4)
  1. HUMALOG LISPRO [Suspect]
     Indication: TYPE 2 DIABETES MELLITUS
     Dosage: UNK UNK, TID
     Route: 065
  2. HUMALOG MIX [Concomitant]
  3. LANTUS [Concomitant]
  4. GLIPIZIDE [Concomitant]

REACTIONS (3)
  - Myocardial infarction [Unknown]
  - Blood glucose increased [Unknown]
  - Drug ineffective [Unknown]
